FAERS Safety Report 10205335 (Version 1)
Quarter: 2014Q2

REPORT INFORMATION
  Report Type: Spontaneous
  Country: US (occurrence: None)
  Receive Date: 20140527
  Receipt Date: 20140527
  Transmission Date: 20141212
  Serious: Yes (Hospitalization)
  Sender: FDA-Public Use
  Company Number: None

PATIENT
  Age: 73 Year
  Sex: Female

DRUGS (7)
  1. AMINOCAPROIC ACID [Suspect]
     Indication: SURGERY
     Dosage: CONTINUOUS DRIP.
     Route: 042
     Dates: start: 20120204, end: 20120207
  2. BISACODYL [Concomitant]
  3. INSULIN ASPART [Concomitant]
  4. LEVOTHYROXINE [Concomitant]
  5. NIMODIPINE [Concomitant]
  6. SENNA [Concomitant]
  7. SIMVASTATIN [Concomitant]

REACTIONS (3)
  - Rash erythematous [None]
  - Pallor [None]
  - Platelet count decreased [None]
